FAERS Safety Report 6815071-2 (Version None)
Quarter: 2010Q2

REPORT INFORMATION
  Report Type: 
  Country: None (occurrence: None)
  Receive Date: 20100630
  Receipt Date: 20100630
  Transmission Date: 20101027
  Serious: No
  Sender: FDA-Public Use
  Company Number: None

PATIENT
  Sex: Male

DRUGS (2)
  1. BUPROPION HCL [Suspect]
     Indication: DEPRESSION
     Dosage: 300 MG DAILY PO
     Route: 048
     Dates: start: 20090401, end: 20090501
  2. BUPROPION HCL [Suspect]
     Indication: DISTURBANCE IN ATTENTION
     Dosage: 300 MG DAILY PO
     Route: 048
     Dates: start: 20090401, end: 20090501

REACTIONS (3)
  - ATAXIA [None]
  - DIZZINESS [None]
  - HEADACHE [None]
